FAERS Safety Report 4360063-9 (Version None)
Quarter: 2004Q2

REPORT INFORMATION
  Report Type: 
  Country: None (occurrence: None)
  Receive Date: 20040514
  Receipt Date: 20040501
  Transmission Date: 20050107
  Serious: Yes (Life-Threatening, Hospitalization)
  Sender: FDA-Public Use
  Company Number: SA-JNJFOC-20040500284

PATIENT
  Age: 83 Year
  Sex: Male

DRUGS (5)
  1. REMICADE (INFLIXIMAB, RECOMBINANT) LYOPHILIZED POWDER [Suspect]
     Indication: RHEUMATOID ARTHRITIS
     Dosage: 100 MG, INTRAVENOUS
     Route: 042
     Dates: start: 20030101, end: 20040223
  2. METHOTREXATE (METHOTREXATE) CAPSULES [Concomitant]
  3. PREDNISOLONE [Concomitant]
  4. ATORVASTATIN (ATORVASTATIN) TABLETS [Concomitant]
  5. AMLOR (AMLODIPINE BESILATE) CAPSULES [Concomitant]

REACTIONS (2)
  - ABDOMINAL PAIN [None]
  - LEUKOCYTOCLASTIC VASCULITIS [None]
